FAERS Safety Report 16458858 (Version 1)
Quarter: 2019Q2

REPORT INFORMATION
  Report Type: Spontaneous
  Country: US (occurrence: US)
  Receive Date: 20190620
  Receipt Date: 20190620
  Transmission Date: 20190711
  Serious: No
  Sender: FDA-Public Use
  Company Number: US-THERAPEUTICSMD-2019TMD01066

PATIENT
  Age: 50 Year
  Sex: Female
  Weight: 69.84 kg

DRUGS (9)
  1. IMVEXXY [Suspect]
     Active Substance: ESTRADIOL
     Indication: DYSPAREUNIA
     Dosage: 10 ?G, 2X/WEEK BEFORE BED
     Route: 067
     Dates: start: 2019, end: 20190506
  2. CLARITIN [Concomitant]
     Active Substance: LORATADINE
  3. VITAMIN D [Concomitant]
     Active Substance: VITAMIN D NOS
  4. BABY ASPIRIN [Concomitant]
     Active Substance: ASPIRIN
  5. VERISOL COLLAGEN [Concomitant]
  6. ACYCLOVIR. [Concomitant]
     Active Substance: ACYCLOVIR
     Dosage: UNK, AS NEEDED
  7. IMVEXXY [Suspect]
     Active Substance: ESTRADIOL
     Indication: VULVOVAGINAL DRYNESS
     Dosage: 10 ?G, 1X/DAY BEFORE BED
     Route: 067
     Dates: start: 2019, end: 2019
  8. BIOTIN [Concomitant]
     Active Substance: BIOTIN
  9. PROGESTERONE. [Concomitant]
     Active Substance: PROGESTERONE
     Dosage: 200 MG, 2X/DAY

REACTIONS (3)
  - Vaginal haemorrhage [Recovered/Resolved]
  - Blood oestrogen increased [Unknown]
  - Endometrial thickening [Unknown]

NARRATIVE: CASE EVENT DATE: 201905
